FAERS Safety Report 17350703 (Version 2)
Quarter: 2020Q2

REPORT INFORMATION
  Report Type: Report from Study
  Country: US (occurrence: US)
  Receive Date: 20200130
  Receipt Date: 20200408
  Transmission Date: 20200713
  Serious: Yes (Death)
  Sender: FDA-Public Use
  Company Number: US-BIOGEN-2020BI00832056

PATIENT
  Sex: Female

DRUGS (1)
  1. PLEGRIDY [Suspect]
     Active Substance: PEGINTERFERON BETA-1A
     Indication: MULTIPLE SCLEROSIS
     Dosage: STRENGTH:125MCG/.5
     Route: 058
     Dates: start: 20160311

REACTIONS (1)
  - Death [Fatal]
